FAERS Safety Report 5031548-7 (Version None)
Quarter: 2006Q2

REPORT INFORMATION
  Report Type: 
  Country: None (occurrence: None)
  Receive Date: 20060615
  Receipt Date: 20060606
  Transmission Date: 20061013
  Serious: Yes (Other)
  Sender: FDA-Public Use
  Company Number: 2003-07-0004

PATIENT
  Age: 61 Year
  Sex: Female

DRUGS (7)
  1. PEG-INTRON [Suspect]
     Indication: ESSENTIAL THROMBOCYTHAEMIA
     Dosage: 25-30 MCG/WK* SUBCUTANEOUS
     Route: 058
     Dates: start: 20020704, end: 20021001
  2. PEG-INTRON [Suspect]
     Indication: ESSENTIAL THROMBOCYTHAEMIA
     Dosage: 25-30 MCG/WK* SUBCUTANEOUS
     Route: 058
     Dates: start: 20021002, end: 20021106
  3. PEG-INTRON [Suspect]
     Indication: ESSENTIAL THROMBOCYTHAEMIA
     Dosage: 25-30 MCG/WK* SUBCUTANEOUS
     Route: 058
     Dates: start: 20020704
  4. PEG-INTRON [Suspect]
     Indication: ESSENTIAL THROMBOCYTHAEMIA
     Dosage: 25-30 MCG/WK* SUBCUTANEOUS
     Route: 058
     Dates: start: 20021107
  5. ASPIRIN [Concomitant]
  6. CALCIUM CARBONATE/CHOLECALCIFEROL COATED TABLETS [Concomitant]
  7. EVISTA (RALOXIFENE HCL) TABLETS [Concomitant]

REACTIONS (1)
  - SKIN CANCER [None]
